FAERS Safety Report 9661362 (Version 1)
Quarter: 2013Q4

REPORT INFORMATION
  Report Type: Spontaneous
  Country: US (occurrence: None)
  Receive Date: 20131030
  Receipt Date: 20131030
  Transmission Date: 20140711
  Serious: Yes (Hospitalization)
  Sender: FDA-Public Use
  Company Number: SYM-2013-11965

PATIENT
  Age: 68 Year
  Sex: Male

DRUGS (22)
  1. FLUOROURACIL (FLUOROURACIL) (FLUOROURACIL) [Suspect]
     Indication: ADENOCARCINOMA GASTRIC
  2. FLUOROURACIL (FLUOROURACIL) (FLUOROURACIL) [Suspect]
     Indication: OESOPHAGEAL ADENOCARCINOMA
  3. OXALIPLATIN (OXALIPLATIN) (OXALIPLATIN) [Suspect]
     Indication: ADENOCARCINOMA GASTRIC
  4. OXALIPLATIN (OXALIPLATIN) (OXALIPLATIN) [Suspect]
     Indication: OESOPHAGEAL ADENOCARCINOMA
  5. INVESTIGATIONAL DRUG [Suspect]
     Indication: ADENOCARCINOMA GASTRIC
     Route: 048
     Dates: start: 20130822
  6. INVESTIGATIONAL DRUG [Suspect]
     Indication: OESOPHAGEAL ADENOCARCINOMA
     Route: 048
     Dates: start: 20130822
  7. FOLINIC ACID (FOLINIC ACID) (FOLINIC ACID) [Suspect]
     Indication: ADENOCARCINOMA GASTRIC
  8. FOLINIC ACID (FOLINIC ACID) (FOLINIC ACID) [Suspect]
     Indication: OESOPHAGEAL ADENOCARCINOMA
  9. COZAAR (LOSARTAN POTASSIUM) (50 MILLIGRAM, TABLETS) (LOSARTAN POTASSIUM) [Concomitant]
  10. LIPITOR (ATORVASTATIN CALCIUM) [Concomitant]
  11. ASPIRIN (ACETYLSALICYLIC ACID) [Concomitant]
  12. PANTOPRAZOLE (PANTOPRAZOLE) [Concomitant]
  13. IMODIUM (LOPERAMIDE HYDROCHLORIDE) [Concomitant]
  14. ATROPINE SULFATE/DIPHENOXYLATE (LOMOTIL/00034001/) (ATROPINE SULFATE, DIPHENOXYLATE HYDROCHLORIDE) [Concomitant]
  15. FERROUS SULFATE [Concomitant]
  16. FLUCONAZOLE [Concomitant]
  17. MAGNESIUM SULFATE [Concomitant]
  18. POTASSIUM CHLORIDE [Concomitant]
  19. VANCOMYCIN [Concomitant]
  20. METOPROLOL [Concomitant]
  21. PHOSPHORUS [Concomitant]
  22. POTASSIUM [Concomitant]

REACTIONS (11)
  - Jejunal perforation [None]
  - Diarrhoea [None]
  - Abdominal pain [None]
  - Tachycardia [None]
  - Hypovolaemia [None]
  - Septic shock [None]
  - Acute respiratory failure [None]
  - Renal tubular necrosis [None]
  - Pancytopenia [None]
  - Pulmonary congestion [None]
  - Cardiomegaly [None]
